FAERS Safety Report 9187754 (Version 1)
Quarter: 2013Q1

REPORT INFORMATION
  Report Type: Spontaneous
  Country: US (occurrence: US)
  Receive Date: 20130325
  Receipt Date: 20130325
  Transmission Date: 20140127
  Serious: Yes (Other)
  Sender: FDA-Public Use
  Company Number: US-SHIRE-ALL1-2013-00573

PATIENT
  Age: 23 Year
  Sex: Female
  Weight: 52.61 kg

DRUGS (2)
  1. PENTASA [Suspect]
     Indication: CROHN^S DISEASE
     Dosage: 2000 MG, 2X/DAY:BID
     Route: 048
     Dates: start: 20121026, end: 20130129
  2. PREDNISONE [Concomitant]
     Indication: CROHN^S DISEASE
     Dosage: 5 MG, 1X/DAY:QD
     Route: 048
     Dates: start: 20121027, end: 20130129

REACTIONS (7)
  - Aphasia [Recovering/Resolving]
  - Memory impairment [Recovering/Resolving]
  - Disturbance in attention [Recovering/Resolving]
  - Confusional state [Recovering/Resolving]
  - Hearing impaired [Unknown]
  - Alopecia [Recovering/Resolving]
  - Off label use [Recovered/Resolved]
